FAERS Safety Report 18042332 (Version 8)
Quarter: 2022Q3

REPORT INFORMATION
  Report Type: Spontaneous
  Country: JP (occurrence: JP)
  Receive Date: 20200720
  Receipt Date: 20220713
  Transmission Date: 20221027
  Serious: Yes (Disabling, Other)
  Sender: FDA-Public Use
  Company Number: JP-GSKNCCC-CASE-00986018_AE-31307

PATIENT

DRUGS (26)
  1. FLUTICASONE FUROATE\VILANTEROL TRIFENATATE [Suspect]
     Active Substance: FLUTICASONE FUROATE\VILANTEROL TRIFENATATE
     Indication: Asthma
     Dosage: 200 ?G, QD
     Route: 055
     Dates: start: 20180828, end: 20190401
  2. FLUTICASONE FUROATE\VILANTEROL TRIFENATATE [Suspect]
     Active Substance: FLUTICASONE FUROATE\VILANTEROL TRIFENATATE
     Dosage: 200 ?G, QD
     Route: 055
     Dates: start: 20190514
  3. SERETIDE [Suspect]
     Active Substance: FLUTICASONE PROPIONATE\SALMETEROL XINAFOATE
     Dosage: 250 UG, BID
     Route: 055
     Dates: start: 20130301, end: 20180422
  4. SYMBICORT [Suspect]
     Active Substance: BUDESONIDE\FORMOTEROL FUMARATE DIHYDRATE
     Dosage: 1 DF, BID
     Route: 055
     Dates: start: 20180423, end: 20180828
  5. SYMBICORT [Suspect]
     Active Substance: BUDESONIDE\FORMOTEROL FUMARATE DIHYDRATE
     Dosage: 1 DF, BID
     Route: 055
     Dates: start: 20190402, end: 20190513
  6. ONON CAPSULES [Concomitant]
     Indication: Asthma
     Dosage: 225 MG, BID
     Route: 048
     Dates: start: 20130301
  7. BENIDIPINE HYDROCHLORIDE [Concomitant]
     Active Substance: BENIDIPINE HYDROCHLORIDE
     Indication: Cardiac disorder
     Dosage: 6 MG, 1D
     Route: 048
     Dates: start: 20141113
  8. BENIDIPINE HYDROCHLORIDE [Concomitant]
     Active Substance: BENIDIPINE HYDROCHLORIDE
     Indication: Prinzmetal angina
  9. XYZAL [Concomitant]
     Active Substance: LEVOCETIRIZINE DIHYDROCHLORIDE
     Indication: Hypersensitivity
     Dosage: 5 MG, QD
     Route: 048
     Dates: start: 20130301
  10. NICORANDIL [Concomitant]
     Active Substance: NICORANDIL
     Indication: Cardiac disorder
     Dosage: 5 MG, QD
     Route: 048
     Dates: start: 20160121
  11. NICORANDIL [Concomitant]
     Active Substance: NICORANDIL
     Indication: Prinzmetal angina
  12. CARBOCYSTEINE [Concomitant]
     Active Substance: CARBOCYSTEINE
     Dosage: 1500 MG, TID
     Route: 048
     Dates: start: 20130315
  13. LIPITOR TABLETS [Concomitant]
     Indication: Dyslipidaemia
     Dosage: 5 MG, QD
     Route: 048
     Dates: start: 20141101
  14. GASMOTIN TABLET [Concomitant]
     Dosage: 15 MG, TID
     Route: 048
     Dates: start: 20180907
  15. NEXIUM [Concomitant]
     Active Substance: ESOMEPRAZOLE MAGNESIUM
     Dosage: 20 MG, QD
     Route: 048
     Dates: start: 20180907
  16. PURSENNID TABLETS [Concomitant]
     Dosage: 24 MG
     Route: 048
     Dates: start: 20130930
  17. MAGNESIUM OXIDE [Concomitant]
     Active Substance: MAGNESIUM OXIDE
     Dosage: 1000 MG
     Route: 048
     Dates: start: 20180907
  18. SULTANOL [Concomitant]
     Active Substance: ALBUTEROL SULFATE
     Dosage: UNK, PRN
     Route: 055
     Dates: start: 20131003
  19. ASPARA POTASSIUM POWDER [Concomitant]
     Dosage: UNK
     Route: 048
  20. ALFAROL CAPSULE [Concomitant]
     Dosage: 0.5 UG, QD
     Route: 048
  21. ALLOPURINOL [Concomitant]
     Active Substance: ALLOPURINOL
     Dosage: 100 MG, QD
     Route: 048
  22. OPALMON [Concomitant]
     Active Substance: LIMAPROST
     Dosage: 15 UG, TID
     Route: 048
  23. MAXALT [Concomitant]
     Active Substance: RIZATRIPTAN BENZOATE
     Dosage: UNK UNK, PRN
     Route: 048
  24. KARY UNI OPHTHALMIC SUSPENSION [Concomitant]
     Dosage: UNK UNK, PRN
  25. SANCOBA OPHTHALMIC SOLUTION [Concomitant]
     Dosage: UNK UNK, PRN
  26. LUPRAC TABLETS [Concomitant]
     Dosage: 4 MG, QD
     Route: 048

REACTIONS (3)
  - Cataract [Recovered/Resolved]
  - Cataract subcapsular [Recovered/Resolved]
  - Vision blurred [Recovered/Resolved]

NARRATIVE: CASE EVENT DATE: 20180101
